FAERS Safety Report 8258876-6 (Version None)
Quarter: 2012Q2

REPORT INFORMATION
  Report Type: 
  Country: None (occurrence: None)
  Receive Date: 20120404
  Receipt Date: 20120321
  Transmission Date: 20120825
  Serious: Yes (Other)
  Sender: FDA-Public Use
  Company Number: GR-TEVA-330240ISR

PATIENT
  Sex: Female

DRUGS (3)
  1. DOXORUBICIN HCL [Suspect]
     Indication: OVARIAN CANCER
     Route: 033
  2. CISPLATIN [Suspect]
     Indication: OVARIAN CANCER
     Route: 033
  3. DEXTROSE PERITONEAL DIALYSIS SOLUTION [Suspect]
     Indication: OVARIAN CANCER
     Route: 033

REACTIONS (11)
  - RASH [None]
  - PLEURAL EFFUSION [None]
  - RENAL FAILURE ACUTE [None]
  - ABDOMINAL ABSCESS [None]
  - ARRHYTHMIA [None]
  - ILEUS [None]
  - PULMONARY EMBOLISM [None]
  - URINARY FISTULA [None]
  - HAEMATOTOXICITY [None]
  - WOUND INFECTION [None]
  - INTESTINAL FISTULA [None]
